FAERS Safety Report 10081624 (Version 2)
Quarter: 2014Q2

REPORT INFORMATION
  Report Type: Spontaneous
  Country: JP (occurrence: JP)
  Receive Date: 20140416
  Receipt Date: 20140529
  Transmission Date: 20141212
  Serious: No
  Sender: FDA-Public Use
  Company Number: JP-ELI_LILLY_AND_COMPANY-JP201404004171

PATIENT
  Age: 63 Year
  Sex: Male

DRUGS (10)
  1. CYMBALTA [Suspect]
     Indication: DEPRESSION
     Dosage: 60 MG, QD
     Route: 048
     Dates: end: 201403
  2. CYMBALTA [Suspect]
     Dosage: 40 MG, QD
     Route: 048
     Dates: start: 201403, end: 201404
  3. GASTER                             /00706001/ [Concomitant]
     Dosage: UNK
     Route: 048
  4. MYONAL                             /00287502/ [Concomitant]
     Dosage: UNK
     Route: 048
  5. LOXONIN [Concomitant]
     Dosage: UNK
     Route: 048
  6. MUCOSTA [Concomitant]
     Dosage: UNK
     Route: 048
  7. DEPAS [Concomitant]
     Dosage: UNK
     Route: 048
  8. JUVELA N [Concomitant]
     Dosage: UNK
     Route: 048
  9. LOSARTAN                           /01121602/ [Concomitant]
     Dosage: UNK
     Route: 048
  10. AMLODIPINE                         /00972402/ [Concomitant]
     Dosage: UNK
     Route: 048

REACTIONS (1)
  - Liver disorder [Recovered/Resolved]
